FAERS Safety Report 25366988 (Version 1)
Quarter: 2025Q2

REPORT INFORMATION
  Report Type: Spontaneous
  Country: HU (occurrence: HU)
  Receive Date: 20250528
  Receipt Date: 20250528
  Transmission Date: 20250716
  Serious: Yes (Life-Threatening, Hospitalization)
  Sender: GLAXOSMITHKLINE
  Company Number: HU-GSK-HU2025GSK065230

PATIENT

DRUGS (13)
  1. LAMOTRIGINE [Suspect]
     Active Substance: LAMOTRIGINE
     Indication: Juvenile myoclonic epilepsy
     Dates: start: 201410
  2. VALPROATE [Suspect]
     Active Substance: VALPROIC ACID
     Indication: Juvenile myoclonic epilepsy
     Dates: start: 201410, end: 201412
  3. VALPROATE [Suspect]
     Active Substance: VALPROIC ACID
     Dates: start: 201412
  4. LEVETIRACETAM [Suspect]
     Active Substance: LEVETIRACETAM
     Indication: Juvenile myoclonic epilepsy
     Dates: start: 201503
  5. ACETAZOLAMIDE [Suspect]
     Active Substance: ACETAZOLAMIDE
     Indication: Juvenile myoclonic epilepsy
     Dates: start: 201704
  6. BRIVARACETAM [Suspect]
     Active Substance: BRIVARACETAM
     Indication: Juvenile myoclonic epilepsy
     Dates: start: 201704
  7. CLOBAZAM [Suspect]
     Active Substance: CLOBAZAM
     Indication: Juvenile myoclonic epilepsy
     Dates: start: 201904
  8. CARBAMAZEPINE [Suspect]
     Active Substance: CARBAMAZEPINE
     Indication: Juvenile myoclonic epilepsy
     Dates: start: 201911
  9. ZONISAMIDE [Suspect]
     Active Substance: ZONISAMIDE
     Indication: Juvenile myoclonic epilepsy
     Dates: start: 202007
  10. CLONAZEPAM [Suspect]
     Active Substance: CLONAZEPAM
     Indication: Juvenile myoclonic epilepsy
     Dates: start: 202105
  11. FELBAMATE [Suspect]
     Active Substance: FELBAMATE
     Indication: Juvenile myoclonic epilepsy
     Dates: start: 202105
  12. CENOBAMATE [Concomitant]
     Active Substance: CENOBAMATE
     Indication: Juvenile myoclonic epilepsy
     Dates: start: 202210
  13. CENOBAMATE [Concomitant]
     Active Substance: CENOBAMATE

REACTIONS (1)
  - Multiple-drug resistance [Unknown]
